FAERS Safety Report 20614153 (Version 1)
Quarter: 2022Q1

REPORT INFORMATION
  Report Type: Spontaneous
  Country: US (occurrence: US)
  Receive Date: 20220320
  Receipt Date: 20220320
  Transmission Date: 20220424
  Serious: Yes (Hospitalization, Other)
  Sender: FDA-Public Use
  Company Number: US-Sprout Pharmaceuticals, Inc.-2022SP000072

PATIENT
  Age: 23 Month
  Sex: Male

DRUGS (1)
  1. ADDYI [Suspect]
     Active Substance: FLIBANSERIN
     Indication: Product used for unknown indication
     Route: 048

REACTIONS (12)
  - Accidental exposure to product by child [Unknown]
  - Hypertension [Unknown]
  - Tachycardia [Unknown]
  - Seizure [Unknown]
  - Muscle spasms [Unknown]
  - Decorticate posture [Unknown]
  - Muscle rigidity [Unknown]
  - Muscle twitching [Unknown]
  - Pyrexia [Unknown]
  - Depressed level of consciousness [Unknown]
  - Lethargy [Unknown]
  - Unresponsive to stimuli [Unknown]
